FAERS Safety Report 8293995-X (Version None)
Quarter: 2012Q2

REPORT INFORMATION
  Report Type: 
  Country: None (occurrence: None)
  Receive Date: 20120410
  Receipt Date: 20120410
  Transmission Date: 20120825
  Serious: No
  Sender: FDA-Public Use
  Company Number: None

PATIENT
  Sex: Female
  Weight: 78.9259 kg

DRUGS (3)
  1. OXALIPLATIN [Concomitant]
  2. FOLFOX [Concomitant]
  3. FUSILEV [Suspect]
     Indication: RECTAL CANCER
     Dosage: 368MG Q2WKS IV
     Route: 042
     Dates: start: 20120131

REACTIONS (1)
  - URTICARIA [None]
